FAERS Safety Report 8279280-0 (Version None)
Quarter: 2012Q2

REPORT INFORMATION
  Report Type: 
  Country: None (occurrence: None)
  Receive Date: 20120412
  Receipt Date: 20120405
  Transmission Date: 20120825
  Serious: Yes (Other)
  Sender: FDA-Public Use
  Company Number: PHHY2012US029777

PATIENT
  Age: 58 Year
  Sex: Female

DRUGS (2)
  1. TYLENOL (CAPLET) [Concomitant]
  2. BUFFERIN [Suspect]
     Indication: MIGRAINE

REACTIONS (1)
  - ULCER HAEMORRHAGE [None]
